FAERS Safety Report 8538526-1 (Version None)
Quarter: 2012Q3

REPORT INFORMATION
  Report Type: 
  Country: None (occurrence: None)
  Receive Date: 20120726
  Receipt Date: 20120713
  Transmission Date: 20120928
  Serious: No
  Sender: FDA-Public Use
  Company Number: US-JNJFOC-20120707811

PATIENT
  Sex: Male

DRUGS (2)
  1. FENTANYL-100 [Suspect]
     Route: 062
     Dates: start: 20110101
  2. FENTANYL-100 [Suspect]
     Indication: BACK PAIN
     Route: 062
     Dates: start: 20100101, end: 20110101

REACTIONS (4)
  - WRONG TECHNIQUE IN DRUG USAGE PROCESS [None]
  - THERAPEUTIC RESPONSE DECREASED [None]
  - WITHDRAWAL SYNDROME [None]
  - HYPERHIDROSIS [None]
